FAERS Safety Report 4638257-4 (Version None)
Quarter: 2005Q2

REPORT INFORMATION
  Report Type: 
  Country: None (occurrence: None)
  Receive Date: 20050415
  Receipt Date: 20050404
  Transmission Date: 20051028
  Serious: Yes (Other)
  Sender: FDA-Public Use
  Company Number: 2005054790

PATIENT
  Age: 78 Year
  Sex: Female
  Weight: 63.5036 kg

DRUGS (5)
  1. CELEBREX [Suspect]
     Indication: OSTEOARTHRITIS
     Dosage: 100 MG (100 MG, 1 IN 1 D), ORAL
     Route: 048
  2. BEXTRA [Suspect]
     Indication: OSTEOARTHRITIS
     Dosage: ORAL
     Route: 048
  3. OMEPRAZOLE [Concomitant]
  4. BETHANECHOL (BETHANECHOL) [Concomitant]
  5. ATENOLOL [Concomitant]

REACTIONS (5)
  - ANKLE FRACTURE [None]
  - ARTHRALGIA [None]
  - DRUG INEFFECTIVE [None]
  - PAIN [None]
  - STOMACH DISCOMFORT [None]
